FAERS Safety Report 13238083 (Version 1)
Quarter: 2017Q1

REPORT INFORMATION
  Report Type: Spontaneous
  Country: US (occurrence: US)
  Receive Date: 20170215
  Receipt Date: 20170215
  Transmission Date: 20170428
  Serious: No
  Sender: FDA-Public Use
  Company Number: None

PATIENT
  Age: 67 Year
  Sex: Female

DRUGS (3)
  1. RAPAMUNE [Suspect]
     Active Substance: SIROLIMUS
     Indication: ESSENTIAL HYPERTENSION
  2. RAPAMUNE [Suspect]
     Active Substance: SIROLIMUS
     Indication: LIVER TRANSPLANT
  3. RAPAMUNE [Suspect]
     Active Substance: SIROLIMUS
     Indication: PANIC DISORDER

REACTIONS (2)
  - Drug level increased [None]
  - Wrong technique in product usage process [None]

NARRATIVE: CASE EVENT DATE: 20170215
